FAERS Safety Report 25374122 (Version 1)
Quarter: 2025Q2

REPORT INFORMATION
  Report Type: Spontaneous
  Country: CN (occurrence: CN)
  Receive Date: 20250529
  Receipt Date: 20250529
  Transmission Date: 20250717
  Serious: Yes (Other)
  Sender: BAYER HEALTHCARE PHARMACEUTICALS INC.
  Company Number: CN-BAYER-2025A071905

PATIENT
  Age: 68 Year
  Sex: Female

DRUGS (1)
  1. KERENDIA [Suspect]
     Active Substance: FINERENONE
     Indication: Diabetic nephropathy
     Dosage: 1 DF, QD
     Route: 048
     Dates: start: 20250419, end: 20250427

REACTIONS (3)
  - Nephropathy toxic [None]
  - Blood creatinine increased [Unknown]
  - Human epidermal growth factor receptor decreased [None]

NARRATIVE: CASE EVENT DATE: 20250424
